FAERS Safety Report 18109836 (Version 4)
Quarter: 2020Q4

REPORT INFORMATION
  Report Type: Report from Study
  Country: CA (occurrence: CA)
  Receive Date: 20200804
  Receipt Date: 20201020
  Transmission Date: 20210113
  Serious: Yes (Hospitalization, Other)
  Sender: FDA-Public Use
  Company Number: CA-JNJFOC-20200737802

PATIENT
  Age: 44 Year
  Sex: Female
  Weight: 68.1 kg

DRUGS (2)
  1. STELARA [Suspect]
     Active Substance: USTEKINUMAB
     Indication: CROHN^S DISEASE
     Dosage: LAST INJECTION ADMINISTERED IN MAY-2020
     Route: 058
     Dates: start: 20190422
  2. STELARA [Suspect]
     Active Substance: USTEKINUMAB
     Dosage: STELARA IV RE-INDUCTION
     Route: 042
     Dates: start: 20201008

REACTIONS (3)
  - Postoperative wound infection [Not Recovered/Not Resolved]
  - Abdominal pain [Unknown]
  - Umbilical hernia [Recovering/Resolving]

NARRATIVE: CASE EVENT DATE: 20200703
